FAERS Safety Report 7796010-7 (Version None)
Quarter: 2011Q4

REPORT INFORMATION
  Report Type: 
  Country: None (occurrence: None)
  Receive Date: 20111004
  Receipt Date: 20110928
  Transmission Date: 20120403
  Serious: Yes (Hospitalization, Other)
  Sender: FDA-Public Use
  Company Number: JP-PFIZER INC-2011189756

PATIENT
  Age: 53 Year
  Sex: Male

DRUGS (2)
  1. AZULFIDINE [Suspect]
     Indication: RHEUMATOID ARTHRITIS
     Dosage: 2 G PER DAY
     Route: 048
  2. AZULFIDINE [Suspect]
     Dosage: 1 G PER DAY
     Route: 048

REACTIONS (6)
  - NECK PAIN [None]
  - HEADACHE [None]
  - ANGIOEDEMA [None]
  - HAND-FOOT-AND-MOUTH DISEASE [None]
  - DRUG RASH WITH EOSINOPHILIA AND SYSTEMIC SYMPTOMS [None]
  - INFECTION [None]
